FAERS Safety Report 16663898 (Version 1)
Quarter: 2019Q3

REPORT INFORMATION
  Report Type: Spontaneous
  Country: CA (occurrence: CA)
  Receive Date: 20190802
  Receipt Date: 20190802
  Transmission Date: 20191004
  Serious: Yes (Hospitalization)
  Sender: FDA-Public Use
  Company Number: CA-TEVA-2019-CA-1084557

PATIENT
  Age: 12 Day
  Sex: Male
  Weight: 3 kg

DRUGS (4)
  1. CEFOTAXIME [Suspect]
     Active Substance: CEFOTAXIME SODIUM
     Indication: MENINGITIS
     Route: 042
  2. ACYCLOVIR. [Concomitant]
     Active Substance: ACYCLOVIR
  3. TOBRAMYCIN. [Suspect]
     Active Substance: TOBRAMYCIN
     Indication: MENINGITIS
     Dosage: 18 MILLIGRAM DAILY;
     Route: 048
  4. AMPICILLIN [Suspect]
     Active Substance: AMPICILLIN
     Indication: MENINGITIS
     Route: 042

REACTIONS (3)
  - Candida infection [Unknown]
  - Erythema annulare [Unknown]
  - Pain [Unknown]
